FAERS Safety Report 14228161 (Version 1)
Quarter: 2017Q4

REPORT INFORMATION
  Report Type: Spontaneous
  Country: US (occurrence: US)
  Receive Date: 20171127
  Receipt Date: 20171127
  Transmission Date: 20180321
  Serious: Yes (Hospitalization, Other)
  Sender: FDA-Public Use
  Company Number: US-TEVA-2017-US-826270

PATIENT
  Age: 17 Year
  Sex: Male

DRUGS (1)
  1. METFORMIN [Suspect]
     Active Substance: METFORMIN HYDROCHLORIDE
     Indication: INTENTIONAL OVERDOSE
     Dosage: INGESTED 20 TABLETS
     Route: 048

REACTIONS (6)
  - Hypertension [Unknown]
  - Intentional overdose [Recovered/Resolved]
  - Hypoglycaemia [Unknown]
  - Metabolic acidosis [Recovered/Resolved]
  - Acute kidney injury [Recovered/Resolved]
  - Blood lactic acid increased [Recovering/Resolving]
